FAERS Safety Report 26102973 (Version 1)
Quarter: 2025Q4

REPORT INFORMATION
  Report Type: Spontaneous
  Country: GB (occurrence: GB)
  Receive Date: 20251128
  Receipt Date: 20251128
  Transmission Date: 20260117
  Serious: Yes (Hospitalization, Other)
  Sender: AUROBINDO
  Company Number: GB-MHRA-MED-202511130839444710-SGVLT

PATIENT
  Age: 17 Year
  Sex: Female

DRUGS (2)
  1. ONDANSETRON [Suspect]
     Active Substance: ONDANSETRON
     Indication: Vision blurred
     Dosage: 4 MILLIGRAM, 3 TIMES A DAY
     Route: 065
  2. ONDANSETRON [Suspect]
     Active Substance: ONDANSETRON
     Indication: Malaise

REACTIONS (13)
  - Dysarthria [Unknown]
  - Movement disorder [Unknown]
  - Vision blurred [Not Recovered/Not Resolved]
  - Tremor [Not Recovered/Not Resolved]
  - Seizure [Not Recovered/Not Resolved]
  - Rash [Recovered/Resolved]
  - Feeling hot [Recovering/Resolving]
  - Chest pain [Recovering/Resolving]
  - Headache [Not Recovered/Not Resolved]
  - Hypotension [Recovering/Resolving]
  - Aphonia [Recovering/Resolving]
  - Blindness [Recovering/Resolving]
  - Condition aggravated [Not Recovered/Not Resolved]
